FAERS Safety Report 5214963-8 (Version None)
Quarter: 2006Q4

REPORT INFORMATION
  Report Type: 
  Country: None (occurrence: None)
  Receive Date: 20061108
  Receipt Date: 20060707
  Transmission Date: 20070319
  Serious: Yes (Other)
  Sender: FDA-Public Use
  Company Number: US200607000982

PATIENT
  Age: 49 Year
  Sex: Male

DRUGS (1)
  1. PROZAC [Suspect]
     Indication: DRUG USE FOR UNKNOWN INDICATION
     Dosage: 10 MG, DAILY (1/D)
     Dates: start: 20060101

REACTIONS (1)
  - PLATELET COUNT DECREASED [None]
